FAERS Safety Report 5599796-5 (Version None)
Quarter: 2008Q1

REPORT INFORMATION
  Report Type: 
  Country: None (occurrence: None)
  Receive Date: 20080118
  Receipt Date: 20080118
  Transmission Date: 20080703
  Serious: Yes (Death)
  Sender: FDA-Public Use
  Company Number: None

PATIENT
  Age: 54 Year
  Sex: Male
  Weight: 108 kg

DRUGS (13)
  1. CETUXIMAB [Suspect]
     Indication: OESOPHAGEAL CANCER METASTATIC
     Dosage: 250 MG/M2
  2. ACAI (PERSONAL HERBAL MED) [Concomitant]
  3. ATIVAN [Concomitant]
  4. DECADRON [Concomitant]
  5. GLIPIZIDE LACTULOSE [Concomitant]
  6. LASIX [Concomitant]
  7. LOVENOX [Concomitant]
  8. MAGNESIUM OXIDE [Concomitant]
  9. MS CONTIN (MORPHINE CONTROLLED RELEASE) [Concomitant]
  10. MSIR (MORPHINE IMMEDIATE RELEASE) [Concomitant]
  11. NIFEREX ELIXIR [Concomitant]
  12. PROTONIX [Concomitant]
  13. PREGLAN (METOCLOPRAMIDE HCL) [Concomitant]

REACTIONS (1)
  - DEATH [None]
